FAERS Safety Report 9338929 (Version 1)
Quarter: 2013Q2

REPORT INFORMATION
  Report Type: Spontaneous
  Country: US (occurrence: US)
  Receive Date: 20130610
  Receipt Date: 20130610
  Transmission Date: 20140414
  Serious: No
  Sender: FDA-Public Use
  Company Number: US-009507513-1306USA003813

PATIENT
  Age: 56 Year
  Sex: Male

DRUGS (3)
  1. FOSAMAX [Suspect]
     Dosage: 70 MG, QW
     Dates: start: 201007
  2. SIMVASTATIN TABLETS, USP [Concomitant]
     Dosage: UNK UNK, QW
  3. PHENOBARBITAL [Concomitant]
     Indication: CONVULSION
     Dosage: 100 MG, UNK

REACTIONS (1)
  - Dizziness [Not Recovered/Not Resolved]
